FAERS Safety Report 9224726 (Version 1)
Quarter: 2013Q1

REPORT INFORMATION
  Report Type: Spontaneous
  Country: US (occurrence: None)
  Receive Date: 20120917
  Receipt Date: 20120917
  Transmission Date: 20140127
  Serious: No
  Sender: FDA-Public Use
  Company Number: 2011SP056444

PATIENT
  Age: 23 Year
  Sex: Female

DRUGS (3)
  1. IMPLANON ( 68 MG) [Suspect]
     Indication: CONTRACEPTION
     Dates: start: 20111117, end: 20111128
  2. DICLOXACILLIN [Concomitant]
  3. TYLENOL WITH CODEINE [Concomitant]

REACTIONS (5)
  - Implant site swelling [None]
  - Implant site pain [None]
  - Implant site rash [None]
  - Implant site pruritus [None]
  - Application site discolouration [None]
